FAERS Safety Report 22063680 (Version 2)
Quarter: 2023Q2

REPORT INFORMATION
  Report Type: Spontaneous
  Country: IT (occurrence: IT)
  Receive Date: 20230306
  Receipt Date: 20230417
  Transmission Date: 20230721
  Serious: Yes (Other)
  Sender: FDA-Public Use
  Company Number: IT-KYOWAKIRIN-2023BKK003258

PATIENT

DRUGS (6)
  1. CRYSVITA [Suspect]
     Active Substance: BUROSUMAB-TWZA
     Indication: Product used for unknown indication
     Dosage: 20 MG, 1X/2 WEEKS (20MG VIAL + 30MG VIAL EVERY 2 WEEKS)
     Route: 058
     Dates: start: 20220513
  2. CRYSVITA [Suspect]
     Active Substance: BUROSUMAB-TWZA
     Dosage: 20 MG, 1X/2 WEEKS (20MG VIAL + 30MG VIAL EVERY 2 WEEKS)
     Route: 058
     Dates: start: 20230218
  3. CRYSVITA [Suspect]
     Active Substance: BUROSUMAB-TWZA
     Dosage: 20 MG, 1X/2 WEEKS (20MG VIAL + 30MG VIAL EVERY 2 WEEKS)
     Route: 058
     Dates: start: 20230403
  4. CRYSVITA [Suspect]
     Active Substance: BUROSUMAB-TWZA
     Indication: Product used for unknown indication
     Dosage: 30 MG, 1X/2 WEEKS (20MG VIAL + 30MG VIAL EVERY 2 WEEKS)
     Route: 058
     Dates: start: 20220513
  5. CRYSVITA [Suspect]
     Active Substance: BUROSUMAB-TWZA
     Dosage: 30 MG, 1X/2 WEEKS (20MG VIAL + 30MG VIAL EVERY 2 WEEKS)
     Route: 058
     Dates: start: 20230218
  6. CRYSVITA [Suspect]
     Active Substance: BUROSUMAB-TWZA
     Dosage: 30 MG, 1X/2 WEEKS (20MG VIAL + 30MG VIAL EVERY 2 WEEKS)
     Route: 058
     Dates: start: 20230403

REACTIONS (2)
  - Hallucination, visual [Recovered/Resolved]
  - Headache [Recovered/Resolved]

NARRATIVE: CASE EVENT DATE: 20230302
